FAERS Safety Report 7238176-3 (Version None)
Quarter: 2011Q1

REPORT INFORMATION
  Report Type: 
  Country: None (occurrence: None)
  Receive Date: 20110121
  Receipt Date: 20110112
  Transmission Date: 20110831
  Serious: Yes (Hospitalization)
  Sender: FDA-Public Use
  Company Number: JP-JNJFOC-20101006882

PATIENT
  Age: 58 Year
  Sex: Male
  Weight: 70 kg

DRUGS (16)
  1. REMICADE [Suspect]
     Route: 042
  2. ANTEBATE [Concomitant]
     Indication: PSORIASIS
  3. MELBIN [Concomitant]
     Route: 048
  4. MYSER [Concomitant]
     Indication: PSORIASIS
  5. LOCOIDON [Concomitant]
     Indication: PSORIASIS
  6. AMLODIPINE [Concomitant]
     Route: 048
  7. PREDONINE [Suspect]
     Indication: ILL-DEFINED DISORDER
     Route: 048
  8. PARIET [Concomitant]
     Route: 048
  9. REMICADE [Suspect]
     Indication: PSORIASIS
     Route: 042
  10. ANTEBATE [Concomitant]
  11. RINDERON-V [Concomitant]
     Indication: PSORIASIS
  12. STARSIS [Concomitant]
     Route: 048
  13. CEFMETAZON [Concomitant]
  14. OXAROL [Concomitant]
     Indication: PSORIASIS
  15. ACTONEL [Concomitant]
     Route: 048
  16. BEZATOL [Concomitant]
     Route: 048

REACTIONS (4)
  - PNEUMONIA BACTERIAL [None]
  - BLOOD BETA-D-GLUCAN INCREASED [None]
  - CYTOMEGALOVIRUS INFECTION [None]
  - PLEURAL INFECTION BACTERIAL [None]
